FAERS Safety Report 9096735 (Version 1)
Quarter: 2013Q1

REPORT INFORMATION
  Report Type: Spontaneous
  Country: US (occurrence: US)
  Receive Date: 20130211
  Receipt Date: 20130211
  Transmission Date: 20140127
  Serious: Yes (Other)
  Sender: FDA-Public Use
  Company Number: PHEH2013US003099

PATIENT
  Sex: Female

DRUGS (1)
  1. RECLAST [Suspect]
     Indication: OSTEOPOROSIS
     Dosage: ONCE A YEARLY, UNK
     Route: 042
     Dates: start: 2011

REACTIONS (3)
  - Pneumothorax [Unknown]
  - Tooth fracture [Unknown]
  - Malaise [Unknown]
